FAERS Safety Report 4336292-7 (Version None)
Quarter: 2004Q2

REPORT INFORMATION
  Report Type: 
  Country: None (occurrence: None)
  Receive Date: 20040407
  Receipt Date: 20040319
  Transmission Date: 20050107
  Serious: Yes (Hospitalization)
  Sender: FDA-Public Use
  Company Number: USA040362611

PATIENT
  Age: 46 Year
  Sex: Female
  Weight: 55 kg

DRUGS (1)
  1. PROZAC [Suspect]
     Indication: DEPRESSION
     Dosage: 40 MG/1 DAY
     Dates: start: 19900101

REACTIONS (5)
  - DEPRESSION [None]
  - FALL [None]
  - FEELING JITTERY [None]
  - LOWER LIMB FRACTURE [None]
  - STRESS SYMPTOMS [None]
